FAERS Safety Report 14100956 (Version 1)
Quarter: 2017Q4

REPORT INFORMATION
  Report Type: Spontaneous
  Country: US (occurrence: None)
  Receive Date: 20171017
  Receipt Date: 20171017
  Transmission Date: 20180321
  Serious: Yes (Death)
  Sender: FDA-Public Use
  Company Number: None

PATIENT
  Age: 67 Year
  Sex: Male
  Weight: 83.01 kg

DRUGS (10)
  1. HUMALOG MIX [Concomitant]
     Active Substance: INSULIN LISPRO
  2. METHADONE [Concomitant]
     Active Substance: METHADONE HYDROCHLORIDE
  3. SERTRALINE [Concomitant]
     Active Substance: SERTRALINE HYDROCHLORIDE
  4. OPDIVO [Suspect]
     Active Substance: NIVOLUMAB
     Indication: HEPATOCELLULAR CARCINOMA
     Dosage: ROUTE - IV INFUSION?DATES OF USE - DOSE 1
     Route: 042
     Dates: start: 20170630
  5. OPDIVO [Suspect]
     Active Substance: NIVOLUMAB
     Dosage: DATE OF USE - DOSE 5
     Dates: start: 20170825
  6. KWIK PEN [Concomitant]
  7. ATORVASTATIN [Concomitant]
     Active Substance: ATORVASTATIN
  8. CLONAZEPAM. [Concomitant]
     Active Substance: CLONAZEPAM
  9. INSULIN PEN [Concomitant]
     Active Substance: INSULIN NOS
  10. LISINOPRIL. [Concomitant]
     Active Substance: LISINOPRIL

REACTIONS (7)
  - Acute interstitial pneumonitis [None]
  - Heart rate increased [None]
  - General physical health deterioration [None]
  - Respiratory acidosis [None]
  - Acute respiratory failure [None]
  - Hypotension [None]
  - Hypoxia [None]

NARRATIVE: CASE EVENT DATE: 20170927
